FAERS Safety Report 14154520 (Version 1)
Quarter: 2017Q4

REPORT INFORMATION
  Report Type: Spontaneous
  Country: US (occurrence: US)
  Receive Date: 20171102
  Receipt Date: 20171102
  Transmission Date: 20180321
  Serious: No
  Sender: FDA-Public Use
  Company Number: US-BAYER-2017-205578

PATIENT
  Age: 64 Year
  Sex: Male

DRUGS (1)
  1. GENERIC PMS STUDY FOR INTERFERON BETA - 1B (250?G) [Suspect]
     Active Substance: INTERFERON BETA-1B
     Dosage: 0.3 MG, QOD
     Dates: start: 20150630

REACTIONS (5)
  - Decreased appetite [None]
  - Fatigue [None]
  - Constipation [None]
  - Depression [None]
  - Decreased interest [None]

NARRATIVE: CASE EVENT DATE: 201708
